FAERS Safety Report 14349142 (Version 1)
Quarter: 2018Q1

REPORT INFORMATION
  Report Type: Spontaneous
  Country: US (occurrence: US)
  Receive Date: 20180104
  Receipt Date: 20180104
  Transmission Date: 20180509
  Serious: No
  Sender: FDA-Public Use
  Company Number: US-TEVA-730883ACC

PATIENT
  Sex: Female
  Weight: 57.66 kg

DRUGS (2)
  1. DEXTROAMPHETAMINE SULFATE. [Suspect]
     Active Substance: DEXTROAMPHETAMINE SULFATE
     Indication: ATTENTION DEFICIT/HYPERACTIVITY DISORDER
     Dates: start: 20161110
  2. DEXTROAMPHETAMINE SULFATE. [Suspect]
     Active Substance: DEXTROAMPHETAMINE SULFATE
     Dates: start: 20161111

REACTIONS (6)
  - Dry mouth [Unknown]
  - Anger [Unknown]
  - Mental disorder [Unknown]
  - Jaw disorder [Unknown]
  - Drug ineffective [Unknown]
  - Dysgeusia [Unknown]
